FAERS Safety Report 7526960-8 (Version None)
Quarter: 2011Q2

REPORT INFORMATION
  Report Type: 
  Country: None (occurrence: None)
  Receive Date: 20110606
  Receipt Date: 20040413
  Transmission Date: 20111010
  Serious: Yes (Death)
  Sender: FDA-Public Use
  Company Number: PHEH2004US04066

PATIENT
  Sex: Male

DRUGS (6)
  1. COUMADIN [Concomitant]
  2. LISINOPRIL [Concomitant]
     Indication: HYPERTENSION
     Dosage: 5 MG, QD
     Dates: start: 20010101
  3. CARDURA [Concomitant]
     Dosage: 4 MG, QD
     Dates: start: 20010101
  4. TOPROL-XL [Concomitant]
     Dosage: 50 MG, QD
     Dates: start: 20010101
  5. CLOZAPINE [Suspect]
     Dosage: 50 MG, QHS
     Route: 048
     Dates: start: 20010525
  6. ASPIRIN [Concomitant]

REACTIONS (3)
  - HAEMATEMESIS [None]
  - GASTRIC ULCER HAEMORRHAGE [None]
  - HAEMOPTYSIS [None]
